FAERS Safety Report 6032674-6 (Version None)
Quarter: 2009Q1

REPORT INFORMATION
  Report Type: 
  Country: None (occurrence: None)
  Receive Date: 20090109
  Receipt Date: 20081223
  Transmission Date: 20090719
  Serious: Yes (Death)
  Sender: FDA-Public Use
  Company Number: US-BAYER-200910199GPV

PATIENT
  Age: 37 Year
  Sex: Male

DRUGS (3)
  1. ASPIRIN [Suspect]
     Indication: DRUG USE FOR UNKNOWN INDICATION
     Route: 048
  2. ASPIRIN [Suspect]
     Route: 048
  3. ACETAMINOPHEN, ASPIRIN AND CAFFEINE [Suspect]
     Indication: DRUG USE FOR UNKNOWN INDICATION
     Route: 048

REACTIONS (5)
  - DRUG TOXICITY [None]
  - FLUSHING [None]
  - HYPERHIDROSIS [None]
  - HYPERTENSION [None]
  - TACHYCARDIA [None]
